FAERS Safety Report 22839310 (Version 2)
Quarter: 2025Q2

REPORT INFORMATION
  Report Type: Report from Study
  Country: US (occurrence: US)
  Receive Date: 20230818
  Receipt Date: 20250625
  Transmission Date: 20250716
  Serious: Yes (Life-Threatening)
  Sender: JOHNSON AND JOHNSON
  Company Number: US-JNJFOC-20230838836

PATIENT
  Age: 62 Year
  Sex: Male

DRUGS (1)
  1. STELARA [Suspect]
     Active Substance: USTEKINUMAB
     Indication: Colitis ulcerative
     Route: 040
     Dates: start: 20230809

REACTIONS (2)
  - Anaphylactic reaction [Recovered/Resolved]
  - Infusion related reaction [Recovered/Resolved]

NARRATIVE: CASE EVENT DATE: 20230809
